FAERS Safety Report 17026375 (Version 3)
Quarter: 2020Q3

REPORT INFORMATION
  Report Type: Report from Study
  Country: US (occurrence: US)
  Receive Date: 20191113
  Receipt Date: 20200730
  Transmission Date: 20201102
  Serious: Yes (Other)
  Sender: FDA-Public Use
  Company Number: NVSC2019US028883

PATIENT
  Sex: Female

DRUGS (1)
  1. GILENYA [Suspect]
     Active Substance: FINGOLIMOD HYDROCHLORIDE
     Indication: MULTIPLE SCLEROSIS
     Dosage: 0.5 MG, QD
     Route: 048

REACTIONS (9)
  - Central nervous system lesion [Unknown]
  - Dysphagia [Unknown]
  - Dyspnoea [Unknown]
  - Stress [Unknown]
  - Aphthous ulcer [Unknown]
  - Eye disorder [Unknown]
  - SARS-CoV-2 test positive [Unknown]
  - Headache [Unknown]
  - Cough [Unknown]
